FAERS Safety Report 11683849 (Version 1)
Quarter: 2015Q4

REPORT INFORMATION
  Report Type: Spontaneous
  Country: US (occurrence: US)
  Receive Date: 20151029
  Receipt Date: 20151029
  Transmission Date: 20160304
  Serious: No
  Sender: FDA-Public Use
  Company Number: US-ROCHE-1622083

PATIENT
  Sex: Female
  Weight: 73.5 kg

DRUGS (2)
  1. HERCEPTIN [Suspect]
     Active Substance: TRASTUZUMAB
     Indication: OVARIAN CANCER
     Route: 042
  2. DOXIL [Suspect]
     Active Substance: DOXORUBICIN HYDROCHLORIDE
     Indication: OVARIAN CANCER
     Route: 042

REACTIONS (10)
  - Tendon disorder [Unknown]
  - Arthritis [Not Recovered/Not Resolved]
  - Strabismus [Not Recovered/Not Resolved]
  - Stomatitis [Not Recovered/Not Resolved]
  - Corneal disorder [Recovered/Resolved]
  - Mucosal inflammation [Not Recovered/Not Resolved]
  - Inflammation [Not Recovered/Not Resolved]
  - Mucosal dryness [Not Recovered/Not Resolved]
  - Muscle disorder [Unknown]
  - Joint dislocation [Not Recovered/Not Resolved]

NARRATIVE: CASE EVENT DATE: 2014
